FAERS Safety Report 10161674 (Version 1)
Quarter: 2014Q2

REPORT INFORMATION
  Report Type: Spontaneous
  Country: PT (occurrence: None)
  Receive Date: 20140507
  Receipt Date: 20140507
  Transmission Date: 20141212
  Serious: Yes (Other)
  Sender: FDA-Public Use
  Company Number: FK201401546

PATIENT
  Age: 55 Year
  Sex: Male
  Weight: 89 kg

DRUGS (4)
  1. PACLITAXEL 6MG/ML CONCENTRATE FOR SOLUTION FOR INFUSION(PACLITAXEL)(PACLITAXEL) [Suspect]
     Indication: OESOPHAGEAL CARCINOMA RECURRENT
     Dosage: 160MG, 1 IN 7 D, INTRAVENOUS (NOT OTHERWISE SPECIFIED)
     Route: 042
     Dates: start: 20140409, end: 20140409
  2. CLEMASTINA (CLEMASTINA) (CLEMASTINA) [Concomitant]
  3. DEXAMETASONEA (DEXAMETASONA) (DEXAMETASONA) [Concomitant]
  4. RANITIDINA (RANITIDINA) (RANITIDINA) [Concomitant]

REACTIONS (4)
  - Anaphylactic reaction [None]
  - Respiratory distress [None]
  - Flushing [None]
  - Infusion related reaction [None]
